FAERS Safety Report 20702281 (Version 1)
Quarter: 2022Q2

REPORT INFORMATION
  Report Type: Spontaneous
  Country: US (occurrence: None)
  Receive Date: 20220411
  Receipt Date: 20220411
  Transmission Date: 20220720
  Serious: Yes (Other)
  Sender: FDA-Public Use
  Company Number: None

PATIENT
  Sex: Female

DRUGS (1)
  1. VCF CONTRACEPTIVE PRE-FILLED APPLICATORS [Suspect]
     Active Substance: NONOXYNOL-9
     Indication: Contraception
     Dosage: OTHER QUANTITY : 1 APPLICATOR?FREQUENCY : AS NEEDED?
     Route: 067
     Dates: start: 20220410, end: 20220411

REACTIONS (1)
  - Vaginal discharge [None]

NARRATIVE: CASE EVENT DATE: 20220410
